FAERS Safety Report 4548588-4 (Version None)
Quarter: 2005Q1

REPORT INFORMATION
  Report Type: 
  Country: None (occurrence: None)
  Receive Date: 20050105
  Receipt Date: 20050105
  Transmission Date: 20050727
  Serious: Yes (Hospitalization, Other)
  Sender: FDA-Public Use
  Company Number: None

PATIENT
  Age: 72 Year
  Sex: Female
  Weight: 122.4712 kg

DRUGS (2)
  1. LEVAQUIN [Suspect]
     Indication: URINARY TRACT INFECTION
     Dosage: 1 PER DAY/ 10 DAYS
     Dates: start: 20040920, end: 20040930
  2. CHEMO [Concomitant]

REACTIONS (9)
  - ASTHENIA [None]
  - DIZZINESS [None]
  - DYSPNOEA [None]
  - HEART RATE INCREASED [None]
  - MYALGIA [None]
  - PAIN [None]
  - PAIN IN EXTREMITY [None]
  - RESTLESSNESS [None]
  - TENDON DISORDER [None]
